FAERS Safety Report 24843344 (Version 1)
Quarter: 2025Q1

REPORT INFORMATION
  Report Type: Spontaneous
  Country: AU (occurrence: AU)
  Receive Date: 20250115
  Receipt Date: 20250115
  Transmission Date: 20250409
  Serious: No
  Sender: ALKEM
  Company Number: AU-ALKEM LABORATORIES LIMITED-AU-ALKEM-2024-05034

PATIENT
  Age: 68 Year
  Sex: Male

DRUGS (1)
  1. METOPROLOL SUCCINATE [Suspect]
     Active Substance: METOPROLOL SUCCINATE
     Indication: Product used for unknown indication
     Route: 065

REACTIONS (7)
  - Tremor [Unknown]
  - Dizziness [Unknown]
  - Hypotension [Unknown]
  - Liver function test abnormal [Unknown]
  - Nausea [Unknown]
  - Palpitations [Unknown]
  - Vomiting [Unknown]
